FAERS Safety Report 22374105 (Version 1)
Quarter: 2023Q2

REPORT INFORMATION
  Report Type: Spontaneous
  Country: DE (occurrence: None)
  Receive Date: 20230526
  Receipt Date: 20230526
  Transmission Date: 20230722
  Serious: Yes (Life-Threatening)
  Sender: FDA-Public Use
  Company Number: 2023A122222

PATIENT
  Age: 86 Year
  Sex: Female
  Weight: 56 kg

DRUGS (44)
  1. OMEPRAZOLE [Suspect]
     Active Substance: OMEPRAZOLE
     Indication: Prophylaxis against gastrointestinal ulcer
     Dosage: 20 MG (DAILY DOSE), , ORAL
     Route: 048
     Dates: start: 20000820, end: 20000917
  2. LIDOCAINE HYDROCHLORIDE [Suspect]
     Active Substance: LIDOCAINE HYDROCHLORIDE
     Indication: Local anaesthesia
     Route: 058
     Dates: start: 20000913, end: 20000913
  3. NOREPINEPHRINE [Suspect]
     Active Substance: NOREPINEPHRINE
     Indication: Coronary artery disease
     Route: 042
     Dates: start: 20000913
  4. MOLSIDOMINE [Suspect]
     Active Substance: MOLSIDOMINE
     Indication: Coronary artery disease
     Route: 048
     Dates: start: 20000820, end: 20000914
  5. CLEMASTINE FUMARATE [Suspect]
     Active Substance: CLEMASTINE FUMARATE
     Indication: Pemphigoid
     Dosage: AMOUNT PER ADMINISTRATION: 4 DF
     Route: 048
     Dates: start: 20000820, end: 20000828
  6. CLEMASTINE FUMARATE [Suspect]
     Active Substance: CLEMASTINE FUMARATE
     Indication: Pemphigoid
     Dosage: 2 DF (DAILY DOSE), , ORAL
     Route: 048
     Dates: start: 20000820, end: 20000828
  7. ESTRIOL [Suspect]
     Active Substance: ESTRIOL
     Indication: Vaginal disorder
     Dosage: AMOUNT PER ADMINISTRATION: 1 DF
     Route: 067
     Dates: start: 20000820, end: 20000906
  8. NOVALGIN (METAMIZOLE SODIUM) [Suspect]
     Active Substance: METAMIZOLE SODIUM
     Indication: Pain
     Dosage: 20 GTT (DAILY DOSE), , ORAL
     Route: 048
     Dates: start: 20000820, end: 20000917
  9. NOVALGIN (METAMIZOLE SODIUM) [Suspect]
     Active Substance: METAMIZOLE SODIUM
     Indication: Pain
     Dosage: AMOUNT PER ADMINISTRATION: 200 GTT
     Route: 048
     Dates: start: 20000820, end: 20000917
  10. FENTANYL [Suspect]
     Active Substance: FENTANYL
     Dosage: 125 MICROGRAMS PER INHALATION, 72 - EVERY HOUR
     Route: 062
  11. FENTANYL [Suspect]
     Active Substance: FENTANYL
     Dosage: 50 MICROGRAMS PER INHALATION, 72 - EVERY HOUR
     Route: 062
  12. FENTANYL [Suspect]
     Active Substance: FENTANYL
     Dosage: 150 MICROGRAMS PER INHALATION, 72 - EVERY HOUR
     Route: 062
  13. FENTANYL [Suspect]
     Active Substance: FENTANYL
     Route: 062
     Dates: start: 20000820, end: 20000916
  14. INSULIN NOS [Suspect]
     Active Substance: INSULIN NOS
     Indication: Diabetes mellitus
     Dosage: SUBCUTANEOUS EXCEPT ON 13 SEP 2000 WHEN GIVEN INTRAVENOUSLY
     Route: 058
     Dates: start: 20000820, end: 20000917
  15. INSULIN NOS [Suspect]
     Active Substance: INSULIN NOS
     Indication: Diabetes mellitus
     Dosage: SUBCUTANEOUS EXCEPT ON 13 SEP 2000 WHEN GIVEN INTRAVENOUSLY
     Route: 042
     Dates: start: 20000913, end: 20000913
  16. DALTEPARIN SODIUM [Suspect]
     Active Substance: DALTEPARIN SODIUM
     Indication: Thrombosis prophylaxis
     Dosage: AMOUNT PER ADMINISTRATION: 1 DF
     Route: 058
     Dates: start: 20000820, end: 20000917
  17. DALTEPARIN SODIUM [Suspect]
     Active Substance: DALTEPARIN SODIUM
     Indication: Coagulopathy
     Dosage: AMOUNT PER ADMINISTRATION: 1 DF
     Route: 058
     Dates: start: 20000820, end: 20000917
  18. PREDNISONE [Suspect]
     Active Substance: PREDNISONE
     Indication: Pemphigoid
     Route: 048
  19. PREDNISONE [Suspect]
     Active Substance: PREDNISONE
     Indication: Dermatitis bullous
     Route: 048
  20. PREDNISONE [Suspect]
     Active Substance: PREDNISONE
     Indication: Pemphigoid
     Route: 048
  21. PREDNISONE [Suspect]
     Active Substance: PREDNISONE
     Indication: Dermatitis bullous
     Route: 048
  22. PREDNISONE [Suspect]
     Active Substance: PREDNISONE
     Indication: Pemphigoid
     Route: 048
  23. PREDNISONE [Suspect]
     Active Substance: PREDNISONE
     Indication: Dermatitis bullous
     Route: 048
  24. PREDNISONE [Suspect]
     Active Substance: PREDNISONE
     Indication: Pemphigoid
     Route: 048
  25. PREDNISONE [Suspect]
     Active Substance: PREDNISONE
     Indication: Dermatitis bullous
     Route: 048
  26. PREDNISONE [Suspect]
     Active Substance: PREDNISONE
     Indication: Pemphigoid
     Route: 048
     Dates: start: 20000820, end: 20000917
  27. PREDNISONE [Suspect]
     Active Substance: PREDNISONE
     Indication: Dermatitis bullous
     Route: 048
     Dates: start: 20000820, end: 20000917
  28. TORSEMIDE [Suspect]
     Active Substance: TORSEMIDE
     Indication: Cardiac failure
     Dosage: 5 MG (DAILY DOSE), , ORAL
     Route: 048
     Dates: start: 20000820, end: 20000917
  29. ISOSORBIDE MONONITRATE [Suspect]
     Active Substance: ISOSORBIDE MONONITRATE
     Indication: Angina pectoris
     Dosage: 1 DF (DAILY DOSE), , ORAL
     Route: 048
     Dates: start: 20000820, end: 20000917
  30. GLYBURIDE [Suspect]
     Active Substance: GLYBURIDE
     Indication: Diabetes mellitus
     Dosage: AMOUNT PER ADMINISTRATION: 3 DF
     Route: 048
     Dates: start: 20000820, end: 20000917
  31. VIOXX [Suspect]
     Active Substance: ROFECOXIB
     Indication: Rheumatic disorder
     Dosage: 25 MG (DAILY DOSE), , ORAL
     Route: 048
     Dates: start: 20000917, end: 20000917
  32. CLONIDINE [Suspect]
     Active Substance: CLONIDINE
     Indication: Coronary artery disease
     Route: 042
     Dates: start: 20000913, end: 20000913
  33. CLONIDINE [Suspect]
     Active Substance: CLONIDINE
     Indication: Hypertension
     Route: 042
     Dates: start: 20000913, end: 20000913
  34. LORMETAZEPAM [Suspect]
     Active Substance: LORMETAZEPAM
     Indication: Sedation
     Dosage: 2 DF (DAILY DOSE), , ORAL
     Route: 048
     Dates: start: 20000913, end: 20000913
  35. DIAZEPAM [Suspect]
     Active Substance: DIAZEPAM
     Route: 042
     Dates: start: 20000913, end: 20000913
  36. PLAVIX [Suspect]
     Active Substance: CLOPIDOGREL BISULFATE
     Indication: Thrombosis prophylaxis
     Dosage: 75 MG (DAILY DOSE), , ORAL
     Route: 048
     Dates: start: 20000913, end: 20000917
  37. PLAVIX [Suspect]
     Active Substance: CLOPIDOGREL BISULFATE
     Indication: Coagulopathy
     Dosage: 75 MG (DAILY DOSE), , ORAL
     Route: 048
     Dates: start: 20000913, end: 20000917
  38. ASPIRIN [Suspect]
     Active Substance: ASPIRIN
     Indication: Coagulopathy
     Dosage: 100 MG (DAILY DOSE), , ORAL
     Route: 048
     Dates: start: 20000914, end: 20000917
  39. CALCIUM [Concomitant]
     Active Substance: CALCIUM
     Indication: Osteoporosis
     Dosage: EFFERVESCENT TABLET
     Route: 048
     Dates: start: 20000820, end: 20000917
  40. DEXTROSE [Concomitant]
     Active Substance: DEXTROSE\DEXTROSE MONOHYDRATE
     Indication: Diabetes mellitus
     Route: 042
     Dates: start: 20000913, end: 20000913
  41. DEXTROSE [Concomitant]
     Active Substance: DEXTROSE\DEXTROSE MONOHYDRATE
     Indication: Cardiovascular disorder
     Route: 042
     Dates: start: 20000913, end: 20000913
  42. COTRIM [Concomitant]
     Active Substance: SULFAMETHOXAZOLE\TRIMETHOPRIM
     Indication: Urinary tract infection
     Dosage: 1 DF (DAILY DOSE), , ORAL
     Route: 048
     Dates: start: 20000916, end: 20000917
  43. RINGERS SOLUTION [Concomitant]
     Active Substance: CALCIUM CHLORIDE\POTASSIUM CHLORIDE\SODIUM CHLORIDE
     Indication: Fluid retention
     Route: 042
     Dates: start: 20000913, end: 20000914
  44. RINGERS SOLUTION [Concomitant]
     Active Substance: CALCIUM CHLORIDE\POTASSIUM CHLORIDE\SODIUM CHLORIDE
     Indication: Electrolyte depletion
     Route: 042
     Dates: start: 20000913, end: 20000914

REACTIONS (6)
  - Toxic epidermal necrolysis [Recovered/Resolved]
  - Erythema [Recovered/Resolved]
  - Blister [Recovered/Resolved]
  - Mucosal erosion [Recovered/Resolved]
  - Mouth ulceration [Recovered/Resolved]
  - Conjunctivitis [Recovered/Resolved]

NARRATIVE: CASE EVENT DATE: 20000916
